FAERS Safety Report 24962222 (Version 1)
Quarter: 2025Q1

REPORT INFORMATION
  Report Type: Spontaneous
  Country: US (occurrence: US)
  Receive Date: 20250212
  Receipt Date: 20250212
  Transmission Date: 20250409
  Serious: No
  Sender: PFIZER
  Company Number: US-PFIZER INC-PV202500015280

PATIENT
  Age: 38 Year
  Sex: Female

DRUGS (1)
  1. NURTEC ODT [Suspect]
     Active Substance: RIMEGEPANT SULFATE
     Dosage: 1 DF, 1X/DAY
     Route: 048
     Dates: start: 20250128, end: 20250131

REACTIONS (1)
  - Nausea [Recovered/Resolved]
